FAERS Safety Report 5699344-5 (Version None)
Quarter: 2008Q2

REPORT INFORMATION
  Report Type: 
  Country: None (occurrence: None)
  Receive Date: 20080404
  Receipt Date: 20080327
  Transmission Date: 20081010
  Serious: Yes (Hospitalization)
  Sender: FDA-Public Use
  Company Number: 2008-02099

PATIENT
  Age: 50 Year
  Sex: Female

DRUGS (2)
  1. METFORMIN HYDROCHLORIDE [Suspect]
     Indication: DIABETES MELLITUS
     Dosage: 1 TABLET, BID, ORAL
     Route: 048
     Dates: start: 20080201, end: 20080325
  2. NEXIUM [Concomitant]

REACTIONS (7)
  - ABDOMINAL DISTENSION [None]
  - ABDOMINAL PAIN UPPER [None]
  - DEHYDRATION [None]
  - DIARRHOEA [None]
  - FLATULENCE [None]
  - LACTOSE INTOLERANCE [None]
  - PHARMACEUTICAL PRODUCT COMPLAINT [None]
